FAERS Safety Report 4315258-7 (Version None)
Quarter: 2004Q1

REPORT INFORMATION
  Report Type: 
  Country: None (occurrence: None)
  Receive Date: 20040309
  Receipt Date: 20040225
  Transmission Date: 20041129
  Serious: Yes (Hospitalization, Other)
  Sender: FDA-Public Use
  Company Number: DE_040213103

PATIENT
  Age: 18 Year
  Sex: Female

DRUGS (2)
  1. VANCOMYCIN HCL [Suspect]
     Indication: STAPHYLOCOCCAL BACTERAEMIA
  2. NON-STEROIDAL ANTI-INFLAMMATORY DRUGS [Concomitant]

REACTIONS (12)
  - BACTERIAL INFECTION [None]
  - BAND NEUTROPHIL PERCENTAGE DECREASED [None]
  - BODY TEMPERATURE INCREASED [None]
  - BRAIN OEDEMA [None]
  - CSF CELL COUNT ABNORMAL [None]
  - CSF GLUCOSE DECREASED [None]
  - GRAND MAL CONVULSION [None]
  - HYDROCEPHALUS [None]
  - INTRACRANIAL PRESSURE INCREASED [None]
  - LEUKOPENIA [None]
  - MUSCULOSKELETAL STIFFNESS [None]
  - WHITE BLOOD CELL COUNT INCREASED [None]
